FAERS Safety Report 9951283 (Version 1)
Quarter: 2014Q1

REPORT INFORMATION
  Report Type: Spontaneous
  Country: US (occurrence: US)
  Receive Date: 20140304
  Receipt Date: 20140304
  Transmission Date: 20141002
  Serious: Yes (Death, Other)
  Sender: FDA-Public Use
  Company Number: US-BAXTER-2014BAX009882

PATIENT
  Age: 5 Year
  Sex: Male

DRUGS (4)
  1. FEIBA [Suspect]
     Indication: IMMUNE TOLERANCE INDUCTION
     Route: 065
  2. FACTOR VIII/VWF CONCENTRATE [Suspect]
     Indication: IMMUNE TOLERANCE INDUCTION
     Route: 065
  3. RFVIIA [Suspect]
     Indication: IMMUNE TOLERANCE INDUCTION
     Route: 065
  4. RITUXIMAB [Suspect]
     Indication: IMMUNE TOLERANCE INDUCTION
     Route: 065

REACTIONS (4)
  - Pulmonary haemorrhage [Unknown]
  - Pneumothorax [Unknown]
  - Pulmonary embolism [Fatal]
  - Right ventricular failure [Fatal]
